FAERS Safety Report 4556477-4 (Version None)
Quarter: 2005Q1

REPORT INFORMATION
  Report Type: 
  Country: None (occurrence: None)
  Receive Date: 20050114
  Receipt Date: 20050110
  Transmission Date: 20050727
  Serious: Yes (Death, Hospitalization)
  Sender: FDA-Public Use
  Company Number: 2005UW00463

PATIENT
  Age: 77 Year
  Sex: Male
  Weight: 83.914 kg

DRUGS (1)
  1. IRESSA [Suspect]
     Indication: LUNG NEOPLASM MALIGNANT

REACTIONS (4)
  - CEREBROVASCULAR ACCIDENT [None]
  - MYOCARDIAL INFARCTION [None]
  - SEPSIS [None]
  - STAPHYLOCOCCAL INFECTION [None]
